FAERS Safety Report 21106225 (Version 3)
Quarter: 2023Q2

REPORT INFORMATION
  Report Type: Spontaneous
  Country: US (occurrence: US)
  Receive Date: 20220720
  Receipt Date: 20230601
  Transmission Date: 20230721
  Serious: No
  Sender: FDA-Public Use
  Company Number: US-PFIZER INC-PV202200025709

PATIENT
  Age: 58 Year
  Sex: Female

DRUGS (2)
  1. XELJANZ [Suspect]
     Active Substance: TOFACITINIB CITRATE
     Indication: Rheumatoid arthritis
     Dosage: 5 MG, 2X/DAY
     Route: 048
     Dates: start: 201501
  2. XELJANZ [Suspect]
     Active Substance: TOFACITINIB CITRATE
     Dosage: SOME DAYS ONE TABLET A DAY OTHER DAYS CUTS 5 MG TABLET IN HALF
     Route: 048

REACTIONS (3)
  - Illness [Unknown]
  - Intentional product misuse [Unknown]
  - Wrong technique in product usage process [Unknown]
